FAERS Safety Report 11534101 (Version 3)
Quarter: 2015Q4

REPORT INFORMATION
  Report Type: Spontaneous
  Country: JP (occurrence: JP)
  Receive Date: 20150922
  Receipt Date: 20151006
  Transmission Date: 20160304
  Serious: Yes (Hospitalization)
  Sender: FDA-Public Use
  Company Number: JP-009507513-1509JPN010047

PATIENT
  Sex: Female

DRUGS (1)
  1. BONALON [Suspect]
     Active Substance: ALENDRONATE SODIUM
     Indication: OSTEOPOROSIS
     Dosage: DIVIDED DOSE FREQUENCY UNKNOWN
     Route: 065
     Dates: start: 201303, end: 201401

REACTIONS (1)
  - Tubulointerstitial nephritis [Recovering/Resolving]
